FAERS Safety Report 5199639-8 (Version None)
Quarter: 2007Q1

REPORT INFORMATION
  Report Type: 
  Country: None (occurrence: None)
  Receive Date: 20070103
  Receipt Date: 20070103
  Transmission Date: 20070707
  Serious: Yes (Hospitalization)
  Sender: FDA-Public Use
  Company Number: None

PATIENT
  Age: 62 Year
  Sex: Female

DRUGS (8)
  1. CISPLATIN [Suspect]
     Indication: ADENOCARCINOMA
     Dosage: 90MG  ONCE  IV
     Route: 042
     Dates: start: 20051220, end: 20051220
  2. CISPLATIN [Suspect]
     Indication: CERVIX CANCER METASTATIC
     Dosage: 90MG  ONCE  IV
     Route: 042
     Dates: start: 20051220, end: 20051220
  3. CISPLATIN [Suspect]
     Indication: METASTASES TO LUNG
     Dosage: 90MG  ONCE  IV
     Route: 042
     Dates: start: 20051220, end: 20051220
  4. IFOSFAMIDE [Suspect]
     Indication: ADENOCARCINOMA
     Dosage: 7.2G  ONCE  IV
     Route: 042
  5. IFOSFAMIDE [Suspect]
     Indication: CERVIX CANCER METASTATIC
     Dosage: 7.2G  ONCE  IV
     Route: 042
  6. IFOSFAMIDE [Suspect]
     Indication: METASTASES TO LUNG
     Dosage: 7.2G  ONCE  IV
     Route: 042
  7. MS CONTIN [Concomitant]
  8. MORPHINE [Concomitant]

REACTIONS (4)
  - CERVIX CANCER METASTATIC [None]
  - MALIGNANT NEOPLASM PROGRESSION [None]
  - METASTASES TO LUNG [None]
  - RENAL FAILURE ACUTE [None]
